FAERS Safety Report 23600227 (Version 1)
Quarter: 2024Q1

REPORT INFORMATION
  Report Type: Spontaneous
  Country: US (occurrence: US)
  Receive Date: 20240306
  Receipt Date: 20240306
  Transmission Date: 20240410
  Serious: No
  Sender: FDA-Public Use
  Company Number: US-BRISTOL-MYERS SQUIBB COMPANY-2024-035934

PATIENT
  Sex: Male

DRUGS (1)
  1. ELIQUIS [Suspect]
     Active Substance: APIXABAN
     Indication: Pulmonary embolism
     Dates: end: 20240301

REACTIONS (4)
  - Joint swelling [Recovered/Resolved]
  - Rash pruritic [Recovered/Resolved]
  - Headache [Recovered/Resolved]
  - Intentional dose omission [Unknown]
